FAERS Safety Report 11167462 (Version 4)
Quarter: 2016Q1

REPORT INFORMATION
  Report Type: Spontaneous
  Country: US (occurrence: US)
  Receive Date: 20150605
  Receipt Date: 20160330
  Transmission Date: 20160525
  Serious: Yes (Hospitalization, Other)
  Sender: FDA-Public Use
  Company Number: US-PFIZER INC-2015187896

PATIENT
  Age: 59 Year
  Sex: Female
  Weight: 126 kg

DRUGS (1)
  1. REVATIO [Suspect]
     Active Substance: SILDENAFIL CITRATE
     Dosage: 20 MG, 3X/DAY

REACTIONS (7)
  - Condition aggravated [Not Recovered/Not Resolved]
  - Urosepsis [Unknown]
  - Hypertension [Unknown]
  - Pulmonary hypertension [Not Recovered/Not Resolved]
  - Malaise [Unknown]
  - Pneumonia [Unknown]
  - Renal disorder [Not Recovered/Not Resolved]
